FAERS Safety Report 20502213 (Version 1)
Quarter: 2022Q1

REPORT INFORMATION
  Report Type: Spontaneous
  Country: US (occurrence: US)
  Receive Date: 20220222
  Receipt Date: 20220222
  Transmission Date: 20220423
  Serious: No
  Sender: FDA-Public Use
  Company Number: US-NOVOPROD-811308

PATIENT
  Age: 71 Year
  Sex: Female

DRUGS (1)
  1. SAXENDA [Suspect]
     Active Substance: LIRAGLUTIDE
     Indication: Product used for unknown indication
     Dosage: DAILY
     Route: 058
     Dates: start: 20210412

REACTIONS (5)
  - Food craving [Unknown]
  - Weight fluctuation [Unknown]
  - Increased appetite [Unknown]
  - Gastroenteritis viral [Not Recovered/Not Resolved]
  - Intentional dose omission [Unknown]

NARRATIVE: CASE EVENT DATE: 20210506
